FAERS Safety Report 5041301-6 (Version None)
Quarter: 2006Q2

REPORT INFORMATION
  Report Type: 
  Country: None (occurrence: None)
  Receive Date: 20060623
  Receipt Date: 20060614
  Transmission Date: 20061013
  Serious: Yes (Death, Life-Threatening)
  Sender: FDA-Public Use
  Company Number: 225854

PATIENT
  Age: 59 Year
  Sex: Male

DRUGS (8)
  1. NUTROPIN AQ [Suspect]
     Indication: GROWTH HORMONE DEFICIENCY
     Dosage: 0.5 MG, 7/WEEK, SUBCUTANEOUS
     Route: 058
     Dates: start: 20040818, end: 20051020
  2. CALCITRIOL [Concomitant]
  3. CARBAMAZEPINE [Concomitant]
  4. CORTEF [Concomitant]
  5. LEVOTHROID [Concomitant]
  6. PRILOSEC [Concomitant]
  7. PRIMIDONE [Concomitant]
  8. METOCLOPRAMIDE (METOCLOPRAMIDE HYDROCHLORIDE) [Concomitant]

REACTIONS (4)
  - NASAL SINUS CANCER [None]
  - NEOPLASM RECURRENCE [None]
  - SKIN ODOUR ABNORMAL [None]
  - WOUND [None]
